FAERS Safety Report 18493845 (Version 2)
Quarter: 2021Q2

REPORT INFORMATION
  Report Type: Report from Study
  Country: US (occurrence: US)
  Receive Date: 20201111
  Receipt Date: 20210428
  Transmission Date: 20210717
  Serious: Yes (Other)
  Sender: FDA-Public Use
  Company Number: US-TAKEDA-US201822589

PATIENT
  Age: 58 Year
  Sex: Female

DRUGS (1)
  1. HUMAN NORMAL IMMUNOGLOBULIN; LIQUID [Suspect]
     Active Substance: HUMAN IMMUNOGLOBULIN G
     Indication: IMMUNODEFICIENCY COMMON VARIABLE
     Route: 042

REACTIONS (10)
  - COVID-19 [Unknown]
  - Renal injury [Unknown]
  - Pulmonary mass [Unknown]
  - Influenza like illness [Unknown]
  - Unevaluable event [Unknown]
  - Haemorrhage [Unknown]
  - Heart injury [Unknown]
  - Liver injury [Unknown]
  - Limb discomfort [Unknown]
  - Nasopharyngitis [Unknown]

NARRATIVE: CASE EVENT DATE: 20180620
